FAERS Safety Report 13696006 (Version 2)
Quarter: 2017Q3

REPORT INFORMATION
  Report Type: Report from Study
  Country: US (occurrence: US)
  Receive Date: 20170628
  Receipt Date: 20170711
  Transmission Date: 20171127
  Serious: Yes (Other)
  Sender: FDA-Public Use
  Company Number: US-ROCHE-1956000

PATIENT
  Age: 71 Year
  Sex: Male

DRUGS (11)
  1. ASPIRIN. [Concomitant]
     Active Substance: ASPIRIN
     Route: 048
  2. LIPITOR [Concomitant]
     Active Substance: ATORVASTATIN CALCIUM
     Route: 048
  3. ACTEMRA [Suspect]
     Active Substance: TOCILIZUMAB
     Dosage: ONGOING:YES
     Route: 058
  4. ACTEMRA [Suspect]
     Active Substance: TOCILIZUMAB
     Dosage: ONGOING:YES
     Route: 058
  5. PREDNISONE. [Concomitant]
     Active Substance: PREDNISONE
     Indication: TEMPORAL ARTERITIS
     Dosage: ON A TAPER REGIME ;ONGOING: YES
     Route: 065
     Dates: start: 20170515
  6. IBUPROFEN. [Concomitant]
     Active Substance: IBUPROFEN
     Dosage: 2-3 TABLET DAILY
     Route: 048
  7. BENADRYL [Concomitant]
     Active Substance: DIPHENHYDRAMINE HYDROCHLORIDE
     Route: 048
  8. OMEPRAZOLE. [Concomitant]
     Active Substance: OMEPRAZOLE
     Route: 048
  9. ACTEMRA [Suspect]
     Active Substance: TOCILIZUMAB
     Indication: TEMPORAL ARTERITIS
     Dosage: ONGOING:NO
     Route: 058
     Dates: start: 20150224
  10. PREDNISONE. [Concomitant]
     Active Substance: PREDNISONE
     Route: 048
  11. ASPIRIN. [Concomitant]
     Active Substance: ASPIRIN
     Route: 048

REACTIONS (11)
  - Synovitis [Unknown]
  - Faeces discoloured [Unknown]
  - Paraesthesia [Unknown]
  - Increased tendency to bruise [Unknown]
  - Sinus disorder [Unknown]
  - Temporal arteritis [Unknown]
  - Overweight [Unknown]
  - Blindness [Recovering/Resolving]
  - Hypoaesthesia [Unknown]
  - Haemorrhagic diathesis [Unknown]
  - Arthralgia [Unknown]

NARRATIVE: CASE EVENT DATE: 20170530
